FAERS Safety Report 9521816 (Version 1)
Quarter: 2013Q3

REPORT INFORMATION
  Report Type: Spontaneous
  Country: US (occurrence: None)
  Receive Date: 20130911
  Receipt Date: 20130911
  Transmission Date: 20140515
  Serious: Yes (Hospitalization)
  Sender: FDA-Public Use
  Company Number: AEUSA201300185

PATIENT
  Age: 59 Year
  Sex: Female
  Weight: 110.68 kg

DRUGS (1)
  1. GAMUNEX-C [Suspect]
     Indication: IMMUNODEFICIENCY COMMON VARIABLE
     Route: 042
     Dates: start: 20130514, end: 20130514

REACTIONS (1)
  - Meningitis aseptic [None]
